FAERS Safety Report 5673123-7 (Version None)
Quarter: 2008Q1

REPORT INFORMATION
  Report Type: 
  Country: None (occurrence: None)
  Receive Date: 20080319
  Receipt Date: 20080312
  Transmission Date: 20080703
  Serious: Yes (Other)
  Sender: FDA-Public Use
  Company Number: DK-AVENTIS-200811897GDDC

PATIENT
  Age: 82 Year
  Sex: Female
  Weight: 51 kg

DRUGS (6)
  1. ARAVA [Suspect]
     Indication: RHEUMATOID ARTHRITIS
     Route: 048
  2. ARAVA [Suspect]
     Route: 048
     Dates: start: 20071205, end: 20080109
  3. FURIX [Concomitant]
     Dates: start: 20070117
  4. MULTI-VITAMINS [Concomitant]
     Dosage: DOSE: UNK
  5. ASCORBIC ACID [Concomitant]
     Dosage: DOSE: UNK
  6. CALCIUM WITH VITAMIN D             /01233101/ [Concomitant]
     Dosage: DOSE: UNK

REACTIONS (1)
  - ALANINE AMINOTRANSFERASE INCREASED [None]
